FAERS Safety Report 10099951 (Version 2)
Quarter: 2014Q2

REPORT INFORMATION
  Report Type: Spontaneous
  Country: US (occurrence: US)
  Receive Date: 20140423
  Receipt Date: 20140423
  Transmission Date: 20141212
  Serious: Yes (Other)
  Sender: FDA-Public Use
  Company Number: US-BANPHARM-20142559

PATIENT
  Age: 67 Year
  Sex: Male
  Weight: 110.22 kg

DRUGS (3)
  1. ALEVE LIQUID GELS 220 MG [Suspect]
     Indication: BACK PAIN
     Dosage: 2 DF,
     Route: 048
     Dates: start: 20140401, end: 20140403
  2. BLOOD PRESSURE MEDICATION [Concomitant]
  3. CHOLESTEROL MEDICATION [Concomitant]

REACTIONS (1)
  - Blood urine present [Recovered/Resolved]
